FAERS Safety Report 5449034-9 (Version None)
Quarter: 2007Q3

REPORT INFORMATION
  Report Type: 
  Country: None (occurrence: None)
  Receive Date: 20070911
  Receipt Date: 20070906
  Transmission Date: 20080115
  Serious: Yes (Other)
  Sender: FDA-Public Use
  Company Number: US-ASTRAZENECA-2007UW21148

PATIENT
  Age: 52 Year
  Sex: Female
  Weight: 72.6 kg

DRUGS (10)
  1. NEXIUM [Suspect]
     Indication: GASTROOESOPHAGEAL REFLUX DISEASE
     Route: 048
  2. MESTINON [Concomitant]
  3. NEURONTIN [Concomitant]
  4. CYMBALTA [Concomitant]
  5. MOBIC [Concomitant]
  6. MORPHINE PUMP SURGICALLY IMPLANTED [Concomitant]
     Dosage: OVER A 24 HOUR TIME PERIOD
  7. HYDROCODONE [Concomitant]
  8. ROBAXIN [Concomitant]
  9. TRAZODONE HCL [Concomitant]
  10. TEMAZEPAM [Concomitant]

REACTIONS (2)
  - BONE DISORDER [None]
  - MYASTHENIA GRAVIS [None]
